FAERS Safety Report 17964188 (Version 1)
Quarter: 2020Q2

REPORT INFORMATION
  Report Type: Spontaneous
  Country: US (occurrence: US)
  Receive Date: 20200630
  Receipt Date: 20200630
  Transmission Date: 20200714
  Serious: Yes (Other)
  Sender: FDA-Public Use
  Company Number: US-PFIZER INC-2020249319

PATIENT
  Age: 52 Year
  Sex: Female
  Weight: 81.65 kg

DRUGS (4)
  1. ALPRAZOLAM. [Concomitant]
     Active Substance: ALPRAZOLAM
     Dosage: 0.5 MG, 1X/DAY (0.5MG, ONE TABLET A NIGHT)
  2. XELJANZ XR [Suspect]
     Active Substance: TOFACITINIB CITRATE
     Indication: PSORIATIC ARTHROPATHY
  3. XELJANZ XR [Suspect]
     Active Substance: TOFACITINIB CITRATE
     Indication: PSORIASIS
     Dosage: 11 MG, 1X/DAY (IN THE MORNING)
     Route: 048
  4. KLONOPIN [Concomitant]
     Active Substance: CLONAZEPAM
     Indication: MUSCLE SPASMS
     Dosage: 0.5 MG, AS NEEDED
     Route: 048

REACTIONS (28)
  - Anorectal disorder [Unknown]
  - Dehydration [Unknown]
  - Gastric disorder [Unknown]
  - Diabetes mellitus [Unknown]
  - Blood calcium increased [Recovered/Resolved]
  - Hepatitis [Unknown]
  - Acquired immunodeficiency syndrome [Unknown]
  - Blood parathyroid hormone abnormal [Not Recovered/Not Resolved]
  - Sleep disorder [Not Recovered/Not Resolved]
  - Feeling abnormal [Unknown]
  - Hypoaesthesia [Unknown]
  - Nervous system disorder [Unknown]
  - Abdominal pain upper [Unknown]
  - Memory impairment [Unknown]
  - Loss of consciousness [Unknown]
  - Hallucination, auditory [Not Recovered/Not Resolved]
  - Flatulence [Unknown]
  - Sexually transmitted disease [Unknown]
  - Injury [Unknown]
  - Constipation [Unknown]
  - Blood parathyroid hormone increased [Not Recovered/Not Resolved]
  - Vitamin D decreased [Recovered/Resolved]
  - Paraesthesia [Unknown]
  - Screaming [Recovered/Resolved]
  - Urinary incontinence [Unknown]
  - Fall [Unknown]
  - Psychotic disorder [Unknown]
  - Anxiety [Unknown]

NARRATIVE: CASE EVENT DATE: 201911
